FAERS Safety Report 10239535 (Version 2)
Quarter: 2014Q2

REPORT INFORMATION
  Report Type: Spontaneous
  Country: US (occurrence: US)
  Receive Date: 20140616
  Receipt Date: 20140624
  Transmission Date: 20141212
  Serious: No
  Sender: FDA-Public Use
  Company Number: US-BAXTER-2014BAX029891

PATIENT
  Sex: Male

DRUGS (1)
  1. 0.9% SODIUM CHLORIDE IRRIGATION, USP [Suspect]
     Indication: PRODUCT USED FOR UNKNOWN INDICATION
     Route: 042
     Dates: start: 20140604, end: 20140604

REACTIONS (3)
  - Wrong drug administered [Recovered/Resolved]
  - Incorrect route of drug administration [Recovered/Resolved]
  - No adverse event [Recovered/Resolved]
